FAERS Safety Report 5922516-9 (Version None)
Quarter: 2008Q4

REPORT INFORMATION
  Report Type: 
  Country: None (occurrence: None)
  Receive Date: 20081017
  Receipt Date: 20081008
  Transmission Date: 20090506
  Serious: Yes (Other)
  Sender: FDA-Public Use
  Company Number: PHHY2008JP10508

PATIENT
  Sex: Female
  Weight: 49 kg

DRUGS (7)
  1. ZOMETA [Suspect]
     Indication: METASTASES TO BONE
     Dosage: 4 MG, TIW
     Route: 042
     Dates: start: 20070701, end: 20080301
  2. ZOMETA [Suspect]
     Dosage: 4 MG, TIW
     Route: 042
     Dates: start: 20080625
  3. GEMZAR [Suspect]
     Indication: BILE DUCT CANCER
     Dosage: UNK
     Dates: start: 20070701
  4. LIVACT [Concomitant]
     Dosage: UNK
     Route: 048
     Dates: start: 20071201
  5. GLAKAY [Concomitant]
     Dosage: UNK
     Route: 048
     Dates: start: 20071201
  6. PROMAC [Concomitant]
     Dosage: UNK
     Route: 048
     Dates: start: 20071201
  7. VITAMEDIN [Concomitant]
     Dosage: UNK
     Dates: start: 20071201

REACTIONS (3)
  - PAIN IN JAW [None]
  - PULPITIS DENTAL [None]
  - TOOTHACHE [None]
